FAERS Safety Report 23424819 (Version 3)
Quarter: 2025Q1

REPORT INFORMATION
  Report Type: Spontaneous
  Country: US (occurrence: US)
  Receive Date: 20240121
  Receipt Date: 20250203
  Transmission Date: 20250409
  Serious: Yes (Other)
  Sender: SANOFI AVENTIS
  Company Number: US-SA-SAC20240116001026

PATIENT
  Sex: Male
  Weight: 111.11 kg

DRUGS (1)
  1. DUPIXENT [Suspect]
     Active Substance: DUPILUMAB
     Indication: Asthma
     Dosage: 300 MG, QOW
     Route: 058

REACTIONS (5)
  - Spinal operation [Unknown]
  - Dehydration [Unknown]
  - Abscess oral [Unknown]
  - Oral pain [Unknown]
  - Injection site pain [Unknown]
